FAERS Safety Report 17124887 (Version 2)
Quarter: 2020Q1

REPORT INFORMATION
  Report Type: Spontaneous
  Country: US (occurrence: US)
  Receive Date: 20191206
  Receipt Date: 20200210
  Transmission Date: 20200409
  Serious: No
  Sender: FDA-Public Use
  Company Number: NVSC2019US059862

PATIENT
  Sex: Female

DRUGS (1)
  1. COSENTYX [Suspect]
     Active Substance: SECUKINUMAB
     Indication: PRODUCT USED FOR UNKNOWN INDICATION
     Dosage: 300 MG (TWO 150 ML PENS)
     Route: 065

REACTIONS (4)
  - Condition aggravated [Unknown]
  - Discomfort [Unknown]
  - Pain [Unknown]
  - Rash [Unknown]
